FAERS Safety Report 19690947 (Version 1)
Quarter: 2021Q3

REPORT INFORMATION
  Report Type: Spontaneous
  Country: US (occurrence: US)
  Receive Date: 20210812
  Receipt Date: 20210812
  Transmission Date: 20211014
  Serious: No
  Sender: FDA-Public Use
  Company Number: None

PATIENT
  Sex: Female

DRUGS (1)
  1. OTEZLA [Suspect]
     Active Substance: APREMILAST
     Indication: PSORIASIS
     Route: 048

REACTIONS (8)
  - Diarrhoea [None]
  - Skin burning sensation [None]
  - Erythema [None]
  - Headache [None]
  - Condition aggravated [None]
  - Drug ineffective [None]
  - Decreased appetite [None]
  - Pruritus [None]
